FAERS Safety Report 9726813 (Version 1)
Quarter: 2013Q4

REPORT INFORMATION
  Report Type: Spontaneous
  Country: US (occurrence: US)
  Receive Date: 20131203
  Receipt Date: 20131203
  Transmission Date: 20140711
  Serious: No
  Sender: FDA-Public Use
  Company Number: US-NOVEN-13US006434

PATIENT
  Sex: Female

DRUGS (6)
  1. FENTANYL [Suspect]
     Indication: BONE CANCER
     Dosage: 100 UG/HR AND ONE 50 UG/HR PATCH EVERY 72 HR
     Route: 062
     Dates: start: 20130123
  2. FENTANYL [Suspect]
     Indication: SPINAL CORD NEOPLASM
     Dosage: 100 UG/HR, UNK
  3. FENTANYL [Suspect]
     Dosage: 100 UG/HR AND 25 UG/HR UNK
  4. DILAUDID [Concomitant]
     Indication: PRODUCT USED FOR UNKNOWN INDICATION
     Route: 048
  5. MOTRIN [Concomitant]
     Indication: PRODUCT USED FOR UNKNOWN INDICATION
     Route: 048
  6. ARIMIDEX [Concomitant]
     Indication: PRODUCT USED FOR UNKNOWN INDICATION

REACTIONS (1)
  - Inadequate analgesia [Not Recovered/Not Resolved]
